FAERS Safety Report 18276482 (Version 2)
Quarter: 2021Q2

REPORT INFORMATION
  Report Type: Spontaneous
  Country: CA (occurrence: CA)
  Receive Date: 20200917
  Receipt Date: 20210514
  Transmission Date: 20210717
  Serious: Yes (Other)
  Sender: FDA-Public Use
  Company Number: CA-ANIPHARMA-2020-CA-001770

PATIENT
  Age: 55 Year
  Sex: Female

DRUGS (9)
  1. PANTOPRAZOLE SODIUM. [Suspect]
     Active Substance: PANTOPRAZOLE SODIUM
     Dosage: 40 MG BID
     Route: 048
     Dates: start: 20200210
  2. AIMOVIG [Suspect]
     Active Substance: ERENUMAB-AOOE
     Dosage: 140 MG MONTH / 140 MG MONTH
     Route: 058
     Dates: start: 20200210
  3. NAPROXEN. [Concomitant]
     Active Substance: NAPROXEN
     Dosage: 500 MG UNK  500 MG UNK / DOSE: 500 MG
     Route: 065
  4. FLUOXETINE HYDROCHLORIDE. [Suspect]
     Active Substance: FLUOXETINE HYDROCHLORIDE
     Dosage: 20 MG UNK
     Route: 065
     Dates: start: 20200210
  5. ERGOCALCIFEROL. [Concomitant]
     Active Substance: ERGOCALCIFEROL
     Dosage: 50000 IU WEEK / DOSE: 50000 IU WEEK
     Route: 065
  6. CANDESARTAN CILEXETIL. [Suspect]
     Active Substance: CANDESARTAN CILEXETIL
     Indication: MIGRAINE
     Dosage: 8 MG UNK / 16 MG UNK / 16 MG UNK / 8 MG UNK
     Route: 048
     Dates: start: 20200210
  7. FERROUS FUMARATE [Concomitant]
     Active Substance: FERROUS FUMARATE
     Dosage: 300 MG UNK / DOSE: 300 MG UNK
     Route: 065
  8. TOPIRAMATE. [Suspect]
     Active Substance: TOPIRAMATE
     Dosage: UNKNOWN DOSE AND FREQUENCY
     Route: 048
     Dates: start: 20200210
  9. MODAFINIL. [Concomitant]
     Active Substance: MODAFINIL
     Dosage: 100 MG BID / DOSE: 100 MG BID
     Route: 065

REACTIONS (14)
  - Blood pressure measurement [Unknown]
  - Eye pain [Unknown]
  - Pain of skin [Unknown]
  - Swelling face [Unknown]
  - Headache [Unknown]
  - Therapeutic product effect decreased [Unknown]
  - Dysstasia [Unknown]
  - Hypertension [Unknown]
  - Nausea [Unknown]
  - Photophobia [Unknown]
  - Drug intolerance [Unknown]
  - Hypoaesthesia oral [Unknown]
  - Off label use [Unknown]
  - Heart rate [Unknown]
